FAERS Safety Report 4588615-1 (Version None)
Quarter: 2005Q1

REPORT INFORMATION
  Report Type: 
  Country: None (occurrence: None)
  Receive Date: 20050218
  Receipt Date: 20050208
  Transmission Date: 20050727
  Serious: Yes (Death)
  Sender: FDA-Public Use
  Company Number: GXKR2005JP00572

PATIENT
  Age: 64 Year
  Sex: Female

DRUGS (4)
  1. RIFAMPICIN [Suspect]
     Indication: TUBERCULOSIS
  2. ISONIAZID [Suspect]
     Indication: TUBERCULOSIS
  3. ETHAMBUTOL HCL [Suspect]
     Indication: TUBERCULOSIS
  4. METHYLPREDNISOLONE [Concomitant]

REACTIONS (7)
  - ACUTE RESPIRATORY DISTRESS SYNDROME [None]
  - CONDITION AGGRAVATED [None]
  - DISEASE PROGRESSION [None]
  - DISSEMINATED CYTOMEGALOVIRAL INFECTION [None]
  - DISSEMINATED TUBERCULOSIS [None]
  - HEPATITIS TOXIC [None]
  - PYREXIA [None]
